FAERS Safety Report 17699115 (Version 1)
Quarter: 2020Q2

REPORT INFORMATION
  Report Type: Spontaneous
  Country: CR (occurrence: CR)
  Receive Date: 20200423
  Receipt Date: 20200423
  Transmission Date: 20200714
  Serious: Yes (Disabling)
  Sender: FDA-Public Use
  Company Number: CR-PFIZER INC-2020133790

PATIENT
  Age: 97 Year
  Sex: Male
  Weight: 55 kg

DRUGS (3)
  1. TAFIL [Suspect]
     Active Substance: ALPRAZOLAM
     Dosage: UNK
  2. PRISTIQ EXTENDED-RELEASE [Suspect]
     Active Substance: DESVENLAFAXINE SUCCINATE
     Indication: CEREBRAL DISORDER
     Dosage: 50 MG, ONE TABLET DAILY
  3. QUETIDIN [Suspect]
     Active Substance: QUETIAPINE FUMARATE
     Dosage: UNK

REACTIONS (3)
  - Cerebral disorder [Unknown]
  - Cerebrovascular accident [Unknown]
  - Senile dementia [Unknown]
